FAERS Safety Report 4420086-8 (Version None)
Quarter: 2004Q3

REPORT INFORMATION
  Report Type: 
  Country: None (occurrence: None)
  Receive Date: 20040806
  Receipt Date: 20040806
  Transmission Date: 20050211
  Serious: Yes (Hospitalization)
  Sender: FDA-Public Use
  Company Number: None

PATIENT
  Age: 91 Year
  Sex: Male
  Weight: 57.4 kg

DRUGS (10)
  1. LANOXIN [Suspect]
     Dosage: 0.25 MG QD BY MOUTH
     Dates: start: 20040512, end: 20040608
  2. VITAMIN E [Concomitant]
  3. RANITIDINE HCL [Concomitant]
  4. MEGESTROL ACETATE (MEGACE) [Concomitant]
  5. LISINOPRIL [Concomitant]
  6. ATENOLOL [Concomitant]
  7. ASPIRIN [Concomitant]
  8. TERAZOSIN HCL (HYTRIN) [Concomitant]
  9. DONEPEZIL HCL [Concomitant]
  10. ACETAMINOPRHEN [Concomitant]

REACTIONS (2)
  - CONFUSIONAL STATE [None]
  - LETHARGY [None]
